FAERS Safety Report 13625342 (Version 1)
Quarter: 2017Q2

REPORT INFORMATION
  Report Type: Spontaneous
  Country: US (occurrence: US)
  Receive Date: 20170607
  Receipt Date: 20170607
  Transmission Date: 20170830
  Serious: No
  Sender: FDA-Public Use
  Company Number: None

PATIENT
  Age: 57 Year
  Sex: Male
  Weight: 107.68 kg

DRUGS (1)
  1. CARBAMAZEPINE 200 MG [Suspect]
     Active Substance: CARBAMAZEPINE

REACTIONS (3)
  - Aura [None]
  - Anticonvulsant drug level abnormal [None]
  - Product substitution issue [None]
